FAERS Safety Report 20784656 (Version 2)
Quarter: 2022Q2

REPORT INFORMATION
  Report Type: Report from Study
  Country: JP (occurrence: JP)
  Receive Date: 20220504
  Receipt Date: 20220520
  Transmission Date: 20220721
  Serious: Yes (Other)
  Sender: FDA-Public Use
  Company Number: JP-PFIZER INC-202200630198

PATIENT
  Age: 6 Month
  Sex: Female
  Weight: 4.2 kg

DRUGS (5)
  1. REVATIO [Suspect]
     Active Substance: SILDENAFIL CITRATE
     Indication: Pulmonary hypertension
     Dosage: 1.33 MG, 3X/DAY
     Dates: start: 20190413, end: 20190414
  2. REVATIO [Suspect]
     Active Substance: SILDENAFIL CITRATE
     Dosage: 2.67 MG, 3X/DAY
     Dates: start: 20190415, end: 20190528
  3. REVATIO [Suspect]
     Active Substance: SILDENAFIL CITRATE
     Dosage: 1.33 MG, 3X/DAY
     Dates: start: 20190529, end: 20190603
  4. REVATIO [Suspect]
     Active Substance: SILDENAFIL CITRATE
     Dosage: 1.67 MG, 3X/DAY, SLIGHTLY INCREASED BASED ON WEIGHT
     Dates: start: 20190605
  5. BOSENTAN [Concomitant]
     Active Substance: BOSENTAN
     Indication: Pulmonary hypertension
     Dosage: UNK
     Route: 048
     Dates: start: 20190418, end: 20190603

REACTIONS (2)
  - Pulmonary vein stenosis [Unknown]
  - Disease progression [Unknown]

NARRATIVE: CASE EVENT DATE: 20190528
